FAERS Safety Report 8462599-8 (Version None)
Quarter: 2012Q2

REPORT INFORMATION
  Report Type: 
  Country: None (occurrence: None)
  Receive Date: 20120625
  Receipt Date: 20120522
  Transmission Date: 20120825
  Serious: No
  Sender: FDA-Public Use
  Company Number: US-BAUSCH-2012BL003439

PATIENT
  Sex: Male

DRUGS (2)
  1. BESIVANCE [Suspect]
     Indication: KERATOMILEUSIS
  2. LOTEMAX [Suspect]
     Indication: KERATOMILEUSIS

REACTIONS (1)
  - IMPAIRED HEALING [None]
